FAERS Safety Report 6695713-5 (Version None)
Quarter: 2010Q2

REPORT INFORMATION
  Report Type: 
  Country: None (occurrence: None)
  Receive Date: 20100426
  Receipt Date: 20100413
  Transmission Date: 20101027
  Serious: Yes (Other)
  Sender: FDA-Public Use
  Company Number: BR-RANBAXY-2010R5-33154

PATIENT

DRUGS (1)
  1. AMOXICILLIN AND CLAVULANATE POTASSIUM [Suspect]
     Indication: LUNG INFECTION
     Dosage: 250MG + 62.5 MG/5ML, TID
     Route: 048
     Dates: start: 20100405, end: 20100411

REACTIONS (1)
  - HAEMATOMA [None]
